FAERS Safety Report 5766709-2 (Version None)
Quarter: 2008Q2

REPORT INFORMATION
  Report Type: 
  Country: None (occurrence: None)
  Receive Date: 20080612
  Receipt Date: 20080604
  Transmission Date: 20081010
  Serious: Yes (Other)
  Sender: FDA-Public Use
  Company Number: DE-WYE-G01604108

PATIENT
  Sex: Male
  Weight: 12 kg

DRUGS (1)
  1. REFACTO [Suspect]
     Indication: FACTOR VIII DEFICIENCY
     Dosage: 41 IU/KG 3X PER WEEK FOR PROPHYLAXIS AND 250 IU ON DEMAND
     Route: 042
     Dates: start: 20080225

REACTIONS (1)
  - ANTI FACTOR VIII ANTIBODY POSITIVE [None]
